FAERS Safety Report 4691692-0 (Version None)
Quarter: 2005Q2

REPORT INFORMATION
  Report Type: 
  Country: None (occurrence: None)
  Receive Date: 20050608
  Receipt Date: 20040409
  Transmission Date: 20051028
  Serious: Yes (Other)
  Sender: FDA-Public Use
  Company Number: 360652

PATIENT
  Age: 21 Year
  Sex: Female

DRUGS (2)
  1. ACCUTANE [Suspect]
     Indication: ACNE CYSTIC
     Dosage: 40 MG 2 PER DAY ORAL
     Route: 048
     Dates: start: 20000929, end: 20010225
  2. BIRTH CONTROL PILLS (ORAL CONTRACEPTIVE NOS) [Concomitant]

REACTIONS (1)
  - DEPRESSION [None]
